FAERS Safety Report 25675438 (Version 2)
Quarter: 2025Q3

REPORT INFORMATION
  Report Type: Report from Study
  Country: US (occurrence: US)
  Receive Date: 20250813
  Receipt Date: 20250819
  Transmission Date: 20251021
  Serious: Yes (Hospitalization)
  Sender: SANOFI AVENTIS
  Company Number: US-SA-2025SA190281

PATIENT
  Age: 45 Year
  Sex: Male

DRUGS (1)
  1. ALTUVIIIO [Suspect]
     Active Substance: EFANESOCTOCOG ALFA
     Indication: Factor VIII deficiency
     Dosage: 3200 (UNITS NOT PROVIDED), QW
     Route: 042
     Dates: start: 202507

REACTIONS (4)
  - Joint swelling [Not Recovered/Not Resolved]
  - Gait disturbance [Not Recovered/Not Resolved]
  - Blister [Recovering/Resolving]
  - Arthralgia [Recovering/Resolving]

NARRATIVE: CASE EVENT DATE: 20250101
